FAERS Safety Report 24943022 (Version 1)
Quarter: 2025Q1

REPORT INFORMATION
  Report Type: Other
  Country: US (occurrence: US)
  Receive Date: 20250207
  Receipt Date: 20250207
  Transmission Date: 20250409
  Serious: Yes (Other)
  Sender: Apozeal Pharmaceuticals
  Company Number: US-Apozeal Pharmaceuticals-2170695

PATIENT
  Age: 71 Year
  Sex: Male

DRUGS (1)
  1. LACTULOSE [Suspect]
     Active Substance: LACTULOSE
     Indication: Ammonia increased

REACTIONS (2)
  - Shock haemorrhagic [Recovering/Resolving]
  - Rectal haemorrhage [Not Recovered/Not Resolved]
